FAERS Safety Report 12242180 (Version 2)
Quarter: 2016Q2

REPORT INFORMATION
  Report Type: Report from Study
  Country: AU (occurrence: AU)
  Receive Date: 20160406
  Receipt Date: 20160419
  Transmission Date: 20160815
  Serious: Yes (Other)
  Sender: FDA-Public Use
  Company Number: AU-VERTEX PHARMACEUTICALS-2016-002107

PATIENT
  Age: 44 Year
  Sex: Male

DRUGS (14)
  1. TADIM [Concomitant]
     Active Substance: COLISTIMETHATE SODIUM
  2. ORKAMBI [Suspect]
     Active Substance: IVACAFTOR\LUMACAFTOR
     Indication: CYSTIC FIBROSIS
     Dosage: 400MG/250MG,  BID
     Route: 048
     Dates: start: 20160310, end: 20160317
  3. IRON [Concomitant]
     Active Substance: IRON
  4. SALBUTAMOL [Concomitant]
     Active Substance: ALBUTEROL
  5. CALCIUM [Concomitant]
     Active Substance: CALCIUM
  6. PANTOPRAZOLE [Concomitant]
     Active Substance: PANTOPRAZOLE SODIUM
  7. DNASE [Concomitant]
     Active Substance: DEOXYRIBONUCLIEC ACID
  8. VIT ABDECK [Concomitant]
  9. AZITHROMYCIN ANHYDROUS. [Concomitant]
     Active Substance: AZITHROMYCIN ANHYDROUS
  10. SYMBICORT [Concomitant]
     Active Substance: BUDESONIDE\FORMOTEROL FUMARATE DIHYDRATE
  11. CREON [Concomitant]
     Active Substance: PANCRELIPASE AMYLASE\PANCRELIPASE LIPASE\PANCRELIPASE PROTEASE
  12. INSULIN [Concomitant]
     Active Substance: INSULIN NOS
  13. ALENDRONATE [Concomitant]
     Active Substance: ALENDRONATE SODIUM
  14. TOBI [Concomitant]
     Active Substance: TOBRAMYCIN

REACTIONS (4)
  - Myalgia [Recovered/Resolved]
  - Nausea [Recovered/Resolved]
  - Headache [Recovered/Resolved]
  - Respiration abnormal [Recovered/Resolved]

NARRATIVE: CASE EVENT DATE: 20160317
